FAERS Safety Report 16601291 (Version 2)
Quarter: 2019Q3

REPORT INFORMATION
  Report Type: Spontaneous
  Country: AT (occurrence: AT)
  Receive Date: 20190719
  Receipt Date: 20190802
  Transmission Date: 20191004
  Serious: Yes (Death)
  Sender: FDA-Public Use
  Company Number: AT-REGENERON PHARMACEUTICALS, INC.-2019-41704

PATIENT

DRUGS (9)
  1. VENDAL                             /00036303/ [Concomitant]
     Active Substance: MORPHINE HYDROCHLORIDE
     Indication: TUMOUR PAIN
     Dosage: 4 MG, QH (HOUR)
     Route: 042
  2. NEODOLPASSE [Concomitant]
     Active Substance: DICLOFENAC SODIUM\ORPHENADRINE CITRATE
     Indication: TUMOUR PAIN
     Dosage: 250 ML, QD
     Route: 042
  3. MOLAXOLE [Concomitant]
     Active Substance: POLYETHYLENE GLYCOL 3350\POTASSIUM CHLORIDE\SODIUM BICARBONATE\SODIUM CHLORIDE
     Indication: CONSTIPATION PROPHYLAXIS
     Dosage: 3 BAGS, UNK
     Route: 048
  4. PREDNISOLONE. [Concomitant]
     Active Substance: PREDNISOLONE
     Indication: ONCOLOGIC COMPLICATION
     Dosage: 10 MG, UNK
     Route: 065
  5. MIRTABENE [Concomitant]
     Active Substance: MIRTAZAPINE
     Indication: DEPRESSION
     Dosage: 30 MG, UNK
     Route: 048
  6. FRAGMIN [Concomitant]
     Active Substance: DALTEPARIN SODIUM
     Indication: THROMBOSIS PROPHYLAXIS
     Dosage: 10000 IU, UNK
     Route: 058
  7. PANTOLOC                           /01263201/ [Concomitant]
     Active Substance: PANTOPRAZOLE SODIUM
     Indication: PROPHYLAXIS
     Dosage: 40 MG, QD
     Route: 048
  8. LIBTAYO [Suspect]
     Active Substance: CEMIPLIMAB-RWLC
     Indication: SKIN SQUAMOUS CELL CARCINOMA METASTATIC
     Dosage: 350 MG, UNK
     Route: 042
     Dates: start: 20190521, end: 20190521
  9. PARACETAMOL [Concomitant]
     Active Substance: ACETAMINOPHEN
     Indication: TUMOUR PAIN
     Dosage: 1 G, UNK
     Route: 042

REACTIONS (1)
  - Disease progression [Fatal]
